FAERS Safety Report 23292677 (Version 2)
Quarter: 2023Q4

REPORT INFORMATION
  Report Type: Spontaneous
  Country: US (occurrence: US)
  Receive Date: 20231213
  Receipt Date: 20231220
  Transmission Date: 20240110
  Serious: No
  Sender: FDA-Public Use
  Company Number: US-SA-SAC20231206001191

PATIENT
  Age: 26 Year
  Sex: Female
  Weight: 70 kg

DRUGS (1)
  1. DUPIXENT [Suspect]
     Active Substance: DUPILUMAB
     Indication: Dermatitis atopic
     Dosage: 300 MG, QOW
     Route: 058
     Dates: start: 20231115

REACTIONS (10)
  - Dry skin [Recovered/Resolved]
  - Skin fissures [Unknown]
  - Skin exfoliation [Recovered/Resolved]
  - Ocular hyperaemia [Unknown]
  - Pruritus [Not Recovered/Not Resolved]
  - Eye swelling [Unknown]
  - Eye pruritus [Unknown]
  - Injection site pruritus [Unknown]
  - Injection site swelling [Recovered/Resolved]
  - Injection site pain [Unknown]

NARRATIVE: CASE EVENT DATE: 20230101
